FAERS Safety Report 12663442 (Version 3)
Quarter: 2016Q4

REPORT INFORMATION
  Report Type: Spontaneous
  Country: US (occurrence: US)
  Receive Date: 20160818
  Receipt Date: 20161117
  Transmission Date: 20170207
  Serious: Yes (Death, Hospitalization)
  Sender: FDA-Public Use
  Company Number: US-JNJFOC-20160811012

PATIENT
  Age: 83 Year
  Sex: Male
  Weight: 66.23 kg

DRUGS (12)
  1. ZYTIGA [Suspect]
     Active Substance: ABIRATERONE ACETATE
     Indication: PROSTATE CANCER
     Route: 048
     Dates: start: 20160515, end: 20160801
  2. PREDNISONE. [Concomitant]
     Active Substance: PREDNISONE
     Indication: PRODUCT USED FOR UNKNOWN INDICATION
     Route: 065
     Dates: start: 1999, end: 2016
  3. PREDNISONE. [Concomitant]
     Active Substance: PREDNISONE
     Indication: VASCULITIS
     Route: 065
     Dates: start: 1999, end: 2016
  4. ARICEPT [Concomitant]
     Active Substance: DONEPEZIL HYDROCHLORIDE
     Indication: DEMENTIA ALZHEIMER^S TYPE
     Route: 065
     Dates: start: 2010, end: 2016
  5. NAMENDA [Concomitant]
     Active Substance: MEMANTINE HYDROCHLORIDE
     Indication: DEMENTIA ALZHEIMER^S TYPE
     Route: 065
     Dates: start: 2010, end: 2016
  6. NAPROXEN. [Concomitant]
     Active Substance: NAPROXEN
     Indication: BONE CANCER
     Route: 065
     Dates: start: 2016
  7. PREDNISONE. [Concomitant]
     Active Substance: PREDNISONE
     Indication: VASCULITIS
     Route: 065
  8. PREDNISONE. [Concomitant]
     Active Substance: PREDNISONE
     Indication: PRODUCT USED FOR UNKNOWN INDICATION
     Route: 065
  9. FOLIC ACID. [Concomitant]
     Active Substance: FOLIC ACID
     Indication: ENERGY INCREASED
     Route: 065
     Dates: start: 2014, end: 2016
  10. ZYTIGA [Suspect]
     Active Substance: ABIRATERONE ACETATE
     Indication: PROSTATE CANCER
     Route: 048
     Dates: start: 20160513, end: 20160513
  11. IMURAN [Concomitant]
     Active Substance: AZATHIOPRINE
     Indication: VASCULITIS
     Route: 065
     Dates: start: 1999, end: 2016
  12. ECOTRIN [Concomitant]
     Active Substance: ASPIRIN
     Indication: ANTICOAGULANT THERAPY
     Route: 065
     Dates: start: 2016

REACTIONS (9)
  - Septic shock [Fatal]
  - Soft tissue infection [Fatal]
  - Pneumonia [Fatal]
  - Duodenal ulcer perforation [Fatal]
  - Duodenal ulcer haemorrhage [Fatal]
  - Nausea [Unknown]
  - Bone pain [Unknown]
  - Transient ischaemic attack [Unknown]
  - Back pain [Unknown]

NARRATIVE: CASE EVENT DATE: 20160513
